FAERS Safety Report 9275897 (Version 1)
Quarter: 2013Q2

REPORT INFORMATION
  Report Type: Spontaneous
  Country: US (occurrence: US)
  Receive Date: 20130507
  Receipt Date: 20130507
  Transmission Date: 20140414
  Serious: Yes (Other)
  Sender: FDA-Public Use
  Company Number: US-009507513-1305USA002255

PATIENT
  Age: 67 Year
  Sex: Female

DRUGS (5)
  1. TEMODAR [Suspect]
     Indication: NEOPLASM MALIGNANT
     Dosage: UNK
     Route: 048
  2. LEVETIRACETAM [Concomitant]
     Indication: CONVULSION
  3. DEXAMETHASONE [Concomitant]
     Dosage: 6 MG, QD
     Route: 048
  4. PANTOPRAZOLE [Concomitant]
     Dosage: 40 MG, QD
  5. ONDANSETRON [Concomitant]
     Dosage: 4 MG, PRN
     Route: 048

REACTIONS (5)
  - Convulsion [Unknown]
  - Alanine aminotransferase increased [Unknown]
  - Fatigue [Unknown]
  - Jaundice [Recovered/Resolved]
  - Blood bilirubin increased [Unknown]
